FAERS Safety Report 4538879-5 (Version None)
Quarter: 2004Q4

REPORT INFORMATION
  Report Type: 
  Country: None (occurrence: None)
  Receive Date: 20041227
  Receipt Date: 20041217
  Transmission Date: 20050328
  Serious: Yes (Hospitalization)
  Sender: FDA-Public Use
  Company Number: FR-ABBOTT-04P-056-0284287-00

PATIENT
  Age: 31 Year
  Sex: Female
  Weight: 57 kg

DRUGS (6)
  1. ISOPTIN [Suspect]
     Indication: DRUG USE FOR UNKNOWN INDICATION
     Route: 048
     Dates: end: 20040924
  2. FUSAFUNGINE [Concomitant]
     Indication: DRUG USE FOR UNKNOWN INDICATION
     Route: 065
  3. LEVOTHYROXINE SODIUM [Concomitant]
     Indication: DRUG USE FOR UNKNOWN INDICATION
     Route: 065
  4. OXOMEMAZINE [Concomitant]
     Indication: DRUG USE FOR UNKNOWN INDICATION
     Route: 065
  5. LOSARTAN [Concomitant]
     Indication: DRUG USE FOR UNKNOWN INDICATION
     Route: 065
  6. IBUPROFEN [Concomitant]
     Indication: DRUG USE FOR UNKNOWN INDICATION
     Route: 065
     Dates: start: 20040920, end: 20040924

REACTIONS (5)
  - ACCIDENTAL OVERDOSE [None]
  - BLOOD CREATININE INCREASED [None]
  - MALAISE [None]
  - ORTHOSTATIC HYPOTENSION [None]
  - RENAL FAILURE [None]
